FAERS Safety Report 6934796-1 (Version None)
Quarter: 2010Q3

REPORT INFORMATION
  Report Type: 
  Country: None (occurrence: None)
  Receive Date: 20100820
  Receipt Date: 20100805
  Transmission Date: 20110219
  Serious: Yes (Death, Hospitalization)
  Sender: FDA-Public Use
  Company Number: PHHY2010NL51692

PATIENT
  Sex: Male

DRUGS (16)
  1. ZOMETA [Suspect]
     Dosage: 4MG/5ML
     Dates: start: 20090727
  2. ZOMETA [Suspect]
     Dosage: 4MG/5ML
     Dates: start: 20090821
  3. ZOMETA [Suspect]
     Dosage: 4MG/5ML
     Dates: start: 20090911
  4. ZOMETA [Suspect]
     Dosage: 4MG/5ML
     Dates: start: 20091002
  5. ZOMETA [Suspect]
     Dosage: 4MG/5ML
     Dates: start: 20091026
  6. ZOMETA [Suspect]
     Dosage: 4MG/5ML
     Dates: start: 20091116
  7. ZOMETA [Suspect]
     Dosage: 4MG/5ML
     Dates: start: 20091207
  8. ZOMETA [Suspect]
     Dosage: 4MG/5ML
     Dates: start: 20091228
  9. ZOMETA [Suspect]
     Dosage: 4MG/5ML
     Dates: start: 20100118
  10. ZOMETA [Suspect]
     Dosage: 4MG/5ML
     Dates: start: 20100209
  11. ZOMETA [Suspect]
     Dosage: 4MG/5ML
     Dates: start: 20090301
  12. ZOMETA [Suspect]
     Dosage: 4MG/5ML
     Dates: start: 20100319
  13. ZOMETA [Suspect]
     Dosage: 4MG/5ML
     Dates: start: 20100412
  14. ZOMETA [Suspect]
     Dosage: 4MG/5ML
     Dates: start: 20100503
  15. ZOMETA [Suspect]
     Dosage: 4MG/5ML
     Dates: start: 20100604
  16. ZOMETA [Suspect]
     Dosage: 4MG/5ML
     Dates: start: 20100713

REACTIONS (8)
  - BACK PAIN [None]
  - CARDIAC ARREST [None]
  - GENERAL PHYSICAL HEALTH DETERIORATION [None]
  - METASTASES TO CENTRAL NERVOUS SYSTEM [None]
  - MUSCULAR WEAKNESS [None]
  - NEUROLOGICAL EYELID DISORDER [None]
  - SPEECH DISORDER [None]
  - SPINAL CORD DISORDER [None]
